FAERS Safety Report 10478409 (Version 1)
Quarter: 2014Q3

REPORT INFORMATION
  Report Type: Spontaneous
  Country: US (occurrence: US)
  Receive Date: 20140926
  Receipt Date: 20140926
  Transmission Date: 20150326
  Serious: No
  Sender: FDA-Public Use
  Company Number: US-TARO-2013P1020226

PATIENT
  Age: 50 Year
  Sex: Female
  Weight: 77.11 kg

DRUGS (8)
  1. VITAMIN E [Concomitant]
     Active Substance: .ALPHA.-TOCOPHEROL
  2. CITRA-CAL [Concomitant]
  3. GARLIC. [Concomitant]
     Active Substance: GARLIC
  4. VITAMIN D [Concomitant]
     Active Substance: CHOLECALCIFEROL
  5. VITAMIN B12 [Concomitant]
     Active Substance: CYANOCOBALAMIN
  6. OCUVITE [Concomitant]
     Active Substance: VITAMINS
  7. MALATHION LOTION USP 0.5% [Suspect]
     Active Substance: MALATHION
     Dosage: X1
     Route: 061
     Dates: start: 20131013, end: 20131013
  8. MULTIVITAMINS [Concomitant]
     Active Substance: VITAMINS

REACTIONS (2)
  - Drug ineffective [Unknown]
  - Product quality issue [Not Recovered/Not Resolved]

NARRATIVE: CASE EVENT DATE: 20131013
